FAERS Safety Report 7691941-0 (Version None)
Quarter: 2011Q3

REPORT INFORMATION
  Report Type: 
  Country: None (occurrence: None)
  Receive Date: 20110815
  Receipt Date: 20110803
  Transmission Date: 20111222
  Serious: Yes (Death, Hospitalization)
  Sender: FDA-Public Use
  Company Number: 120787

PATIENT
  Age: 4 Year

DRUGS (1)
  1. KETAMINE HCL [Suspect]
     Indication: ANAESTHESIA

REACTIONS (4)
  - PULMONARY ARTERIAL PRESSURE INCREASED [None]
  - ELECTROCARDIOGRAM ST SEGMENT DEPRESSION [None]
  - VENTRICULAR FIBRILLATION [None]
  - ARRHYTHMIA [None]
